FAERS Safety Report 9584445 (Version 1)
Quarter: 2013Q4

REPORT INFORMATION
  Report Type: Spontaneous
  Country: US (occurrence: US)
  Receive Date: 20131002
  Receipt Date: 20131002
  Transmission Date: 20140711
  Serious: No
  Sender: FDA-Public Use
  Company Number: US-AMGEN-USASP2013053306

PATIENT
  Age: 58 Year
  Sex: Female
  Weight: 99.77 kg

DRUGS (7)
  1. ENBREL [Suspect]
     Indication: PRODUCT USED FOR UNKNOWN INDICATION
     Dosage: 50 MG, QWK
     Route: 058
  2. LEFLUNOMIDE [Concomitant]
     Dosage: 10 MG, UNK
  3. TRAMADOL HCL [Concomitant]
     Dosage: 50 MG, UNK
  4. HYDROXYCHLOROQUINE [Concomitant]
     Dosage: 200 MG, UNK
  5. HYDROCHLOROTH [Concomitant]
     Dosage: 12.5 MG, UNK
  6. AMLODIPINE [Concomitant]
     Dosage: 2.5 MG, UNK
  7. FUROSEMIDE [Concomitant]
     Dosage: 20 MG, UNK

REACTIONS (2)
  - Rash [Recovered/Resolved]
  - Drug ineffective [Unknown]
